FAERS Safety Report 6409416-5 (Version None)
Quarter: 2009Q4

REPORT INFORMATION
  Report Type: 
  Country: None (occurrence: None)
  Receive Date: 20091019
  Receipt Date: 20091019
  Transmission Date: 20100525
  Serious: Yes (Other)
  Sender: FDA-Public Use
  Company Number: None

PATIENT
  Age: 35 Year
  Sex: Female
  Weight: 83.0083 kg

DRUGS (1)
  1. DEPO-PROVERA [Suspect]
     Indication: MENORRHAGIA
     Dosage: 1 SHOT 2-3 MONTHS TRANSDERMAL
     Route: 062

REACTIONS (6)
  - ARTHRALGIA [None]
  - BONE PAIN [None]
  - EXOSTOSIS [None]
  - OSTEOPENIA [None]
  - PAIN [None]
  - PAIN IN EXTREMITY [None]
